FAERS Safety Report 11605365 (Version 3)
Quarter: 2016Q2

REPORT INFORMATION
  Report Type: Spontaneous
  Country: US (occurrence: US)
  Receive Date: 20151007
  Receipt Date: 20160526
  Transmission Date: 20160815
  Serious: Yes (Hospitalization, Other)
  Sender: FDA-Public Use
  Company Number: US-PFIZER INC-2015332608

PATIENT
  Age: 75 Year
  Sex: Female
  Weight: 109 kg

DRUGS (4)
  1. TOVIAZ [Suspect]
     Active Substance: FESOTERODINE FUMARATE
     Indication: BLADDER DISORDER
     Dosage: 8 MG, 1X/DAY (AT AROUND LUNCH TIME)
     Route: 048
  2. AMLODIPINE [Concomitant]
     Active Substance: AMLODIPINE BESYLATE
     Indication: HYPERTENSION
     Dosage: 5 MG, UNK
  3. TOVIAZ [Suspect]
     Active Substance: FESOTERODINE FUMARATE
     Indication: URINARY INCONTINENCE
  4. COUMADIN [Concomitant]
     Active Substance: WARFARIN SODIUM
     Dosage: UNK, 1X/DAY (AT BEDTIME)
     Dates: start: 2002

REACTIONS (11)
  - Polyp [Unknown]
  - International normalised ratio abnormal [Recovered/Resolved]
  - Joint dislocation [Unknown]
  - General physical health deterioration [Not Recovered/Not Resolved]
  - Movement disorder [Not Recovered/Not Resolved]
  - Gastrointestinal haemorrhage [Unknown]
  - Drug dispensing error [Unknown]
  - Post procedural haemorrhage [Recovered/Resolved]
  - Arrhythmia [Unknown]
  - Road traffic accident [Unknown]
  - Drug effect incomplete [Unknown]

NARRATIVE: CASE EVENT DATE: 20150921
